FAERS Safety Report 13053834 (Version 2)
Quarter: 2016Q4

REPORT INFORMATION
  Report Type: Report from Study
  Country: IT (occurrence: IT)
  Receive Date: 20161222
  Receipt Date: 20161229
  Transmission Date: 20170207
  Serious: Yes (Other)
  Sender: FDA-Public Use
  Company Number: IT-TEVA-722412ACC

PATIENT
  Sex: Female

DRUGS (2)
  1. BEVACIZUMAB [Suspect]
     Active Substance: BEVACIZUMAB
     Indication: BREAST CANCER METASTATIC
     Dosage: EVERY TWO WEEKS; FIRST DOSE INFUSED OVER 90 MINUTES
     Route: 041
  2. PACLITAXEL. [Suspect]
     Active Substance: PACLITAXEL
     Indication: BREAST CANCER METASTATIC
     Dosage: WEEKLY ON DAY 1, 8 AND 15 OF 21 DAY CYCLE
     Route: 065

REACTIONS (3)
  - Neutropenia [Unknown]
  - Proteinuria [Unknown]
  - Hypertension [Unknown]
